FAERS Safety Report 9989857 (Version 1)
Quarter: 2014Q1

REPORT INFORMATION
  Report Type: Report from Study
  Country: US (occurrence: US)
  Receive Date: 20140310
  Receipt Date: 20140310
  Transmission Date: 20141002
  Serious: No
  Sender: FDA-Public Use
  Company Number: US-ABBVIE-13P-163-1130507-00

PATIENT
  Age: 25 Year
  Sex: Female

DRUGS (4)
  1. HUMIRA [Suspect]
     Indication: CROHN^S DISEASE
     Dates: start: 20130703, end: 20130703
  2. HUMIRA [Suspect]
     Dates: start: 20130717, end: 20130717
  3. HUMIRA [Suspect]
     Dates: start: 20130802
  4. SERTRALINE [Concomitant]
     Indication: ANXIETY
     Dosage: 200MG DAILY

REACTIONS (5)
  - Inappropriate schedule of drug administration [Unknown]
  - Injection site nodule [Recovered/Resolved]
  - Injection site pruritus [Not Recovered/Not Resolved]
  - Injection site erythema [Recovered/Resolved]
  - Injection site pain [Recovering/Resolving]
